FAERS Safety Report 6469830-9 (Version None)
Quarter: 2009Q4

REPORT INFORMATION
  Report Type: 
  Country: None (occurrence: None)
  Receive Date: 20091203
  Receipt Date: 20080111
  Transmission Date: 20100525
  Serious: Yes (Hospitalization)
  Sender: FDA-Public Use
  Company Number: JP-ELI_LILLY_AND_COMPANY-JP200711006765

PATIENT
  Sex: Female

DRUGS (8)
  1. RALOXIFENE HYDROCHLORIDE [Suspect]
     Indication: OSTEOPOROSIS POSTMENOPAUSAL
     Dosage: 60 MG, DAILY (1/D)
     Route: 048
     Dates: start: 20050314, end: 20070221
  2. ADALAT CR /SCH/ [Concomitant]
     Indication: HYPERTENSION
     Dosage: 40 MG, DAILY (1/D)
     Route: 048
     Dates: end: 20070221
  3. ELCITONIN [Concomitant]
     Indication: OSTEOPOROSIS POSTMENOPAUSAL
     Dosage: 20 U, DAILY (1/D)
     Route: 042
     Dates: start: 20050915
  4. OSTELUC [Concomitant]
     Indication: BACK PAIN
     Dosage: 400 MG, DAILY (1/D)
     Route: 048
     Dates: start: 20060322, end: 20070221
  5. ALTAT [Concomitant]
     Indication: GASTRITIS
     Dosage: 150 MG, DAILY (1/D)
     Route: 048
     Dates: start: 20060322, end: 20070221
  6. SELBEX [Concomitant]
     Indication: GASTRITIS
     Dosage: 100 MG, DAILY (1/D)
     Route: 048
     Dates: start: 20060322, end: 20070221
  7. BLOPRESS [Concomitant]
     Indication: HYPERTENSION
     Dosage: 8 MG, DAILY (1/D)
     Route: 048
     Dates: end: 20061225
  8. BLOPRESS [Concomitant]
     Dosage: 12 MG, DAILY (1/D)
     Route: 048
     Dates: start: 20061226, end: 20070221

REACTIONS (1)
  - BREAST CANCER STAGE III [None]
